FAERS Safety Report 15255445 (Version 1)
Quarter: 2018Q3

REPORT INFORMATION
  Report Type: Spontaneous
  Country: US (occurrence: US)
  Receive Date: 20180717
  Receipt Date: 20180717
  Transmission Date: 20181010
  Serious: Yes (Disabling)
  Sender: FDA-Public Use
  Company Number: None

PATIENT
  Age: 70 Year
  Sex: Female
  Weight: 87.75 kg

DRUGS (2)
  1. ADVAIR DISKUS [Suspect]
     Active Substance: FLUTICASONE PROPIONATE\SALMETEROL XINAFOATE
     Indication: RESPIRATORY DISORDER
     Dosage: ?          QUANTITY:2 INHALATION(S);?
     Route: 055
     Dates: start: 20171215
  2. CETIRIZINE [Concomitant]
     Active Substance: CETIRIZINE HYDROCHLORIDE

REACTIONS (5)
  - Scab [None]
  - Oral pruritus [None]
  - Oral mucosal eruption [None]
  - Drug ineffective [None]
  - Oral mucosal erythema [None]

NARRATIVE: CASE EVENT DATE: 20180206
